FAERS Safety Report 4792477-7 (Version None)
Quarter: 2005Q4

REPORT INFORMATION
  Report Type: 
  Country: None (occurrence: None)
  Receive Date: 20051010
  Receipt Date: 20051005
  Transmission Date: 20060501
  Serious: Yes (Hospitalization)
  Sender: FDA-Public Use
  Company Number: IT-GLAXOSMITHKLINE-B0396546A

PATIENT
  Age: 78 Year
  Sex: Female

DRUGS (4)
  1. AUGMENTIN '125' [Suspect]
     Indication: PROPHYLAXIS
     Dosage: 1G THREE TIMES PER DAY
     Route: 048
     Dates: start: 20050930, end: 20051004
  2. ATORVASTATIN [Concomitant]
     Route: 048
  3. NADROPARIN CALCIUM [Concomitant]
     Route: 058
  4. QUINAPRIL HCL [Concomitant]
     Route: 048

REACTIONS (3)
  - RASH ERYTHEMATOUS [None]
  - RASH PRURITIC [None]
  - SKIN BURNING SENSATION [None]
